FAERS Safety Report 20374174 (Version 1)
Quarter: 2022Q1

REPORT INFORMATION
  Report Type: Spontaneous
  Country: LT (occurrence: LT)
  Receive Date: 20220125
  Receipt Date: 20220125
  Transmission Date: 20220423
  Serious: Yes (Other)
  Sender: FDA-Public Use
  Company Number: LT-EMA-DD-20220112-kaur_j6-170538

PATIENT
  Age: 60 Year
  Sex: Male

DRUGS (4)
  1. PEMETREXED [Suspect]
     Active Substance: PEMETREXED
     Indication: Lung carcinoma cell type unspecified stage IV
     Dosage: UNK UNK, UNKNOWN
     Route: 065
     Dates: start: 20210408
  2. PEMBROLIZUMAB [Suspect]
     Active Substance: PEMBROLIZUMAB
     Indication: Lung carcinoma cell type unspecified stage IV
     Dosage: UNK, UNKNOWN
     Route: 065
     Dates: start: 20210408
  3. CISPLATIN [Suspect]
     Active Substance: CISPLATIN
     Indication: Lung carcinoma cell type unspecified stage IV
     Dosage: UNK, UNKNOWN
     Route: 065
     Dates: start: 20210408
  4. DENOSUMAB [Suspect]
     Active Substance: DENOSUMAB
     Indication: Lung carcinoma cell type unspecified stage IV
     Dosage: UNK, UNKNOWN
     Route: 065
     Dates: start: 20210408

REACTIONS (3)
  - Polyneuropathy [Unknown]
  - Pulmonary embolism [Unknown]
  - Product use issue [Unknown]

NARRATIVE: CASE EVENT DATE: 20210101
